FAERS Safety Report 5456889-0 (Version None)
Quarter: 2007Q3

REPORT INFORMATION
  Report Type: 
  Country: None (occurrence: None)
  Receive Date: 20070918
  Receipt Date: 20070430
  Transmission Date: 20080115
  Serious: Yes (Other)
  Sender: FDA-Public Use
  Company Number: US-ASTRAZENECA-2006UW26511

PATIENT
  Sex: Female
  Weight: 91.4 kg

DRUGS (9)
  1. SEROQUEL [Suspect]
     Indication: BIPOLAR DISORDER
     Dosage: 200 MG, 600 MG, 800 MG
     Route: 048
     Dates: start: 19990101
  2. SEROQUEL [Suspect]
     Indication: SCHIZOAFFECTIVE DISORDER
     Dosage: 200 MG, 600 MG, 800 MG
     Route: 048
     Dates: start: 19990101
  3. DEXATRIM [Concomitant]
     Dates: start: 19990101, end: 20020101
  4. CLOZARIL [Concomitant]
  5. HALDOL [Concomitant]
  6. RISPERDAL [Concomitant]
  7. THORAZINE [Concomitant]
  8. TRILAFON [Concomitant]
  9. ZYPREXA [Concomitant]

REACTIONS (2)
  - DIABETES MELLITUS [None]
  - OVERDOSE [None]
